FAERS Safety Report 4304372-8 (Version None)
Quarter: 2004Q1

REPORT INFORMATION
  Report Type: 
  Country: None (occurrence: None)
  Receive Date: 20040224
  Receipt Date: 20040211
  Transmission Date: 20041129
  Serious: Yes (Other)
  Sender: FDA-Public Use
  Company Number: HQWYE989913FEB04

PATIENT
  Age: 51 Year
  Sex: Male

DRUGS (1)
  1. RAPAMUNE [Suspect]
     Dosage: ORAL
     Route: 048
     Dates: start: 20030401, end: 20031205

REACTIONS (1)
  - GLOMERULONEPHRITIS FOCAL [None]
